FAERS Safety Report 5442430-5 (Version None)
Quarter: 2007Q3

REPORT INFORMATION
  Report Type: 
  Country: None (occurrence: None)
  Receive Date: 20070904
  Receipt Date: 20070823
  Transmission Date: 20080115
  Serious: Yes (Other)
  Sender: FDA-Public Use
  Company Number: US-PFIZER INC-2007071462

PATIENT
  Sex: Male
  Weight: 68 kg

DRUGS (9)
  1. LYRICA [Suspect]
     Indication: NEURALGIA
  2. PROCRIT [Suspect]
     Indication: ANAEMIA OF MALIGNANT DISEASE
     Dosage: DAILY DOSE:40000I.U.
     Dates: start: 20050101, end: 20070626
  3. REVLIMID [Suspect]
  4. LEUKINE [Suspect]
     Indication: WHITE BLOOD CELL COUNT
  5. GABAPENTIN [Concomitant]
     Indication: ARTHRITIS
  6. LASIX [Concomitant]
     Indication: OEDEMA PERIPHERAL
  7. VITAMINS [Concomitant]
  8. ANTIHYPERTENSIVES [Concomitant]
  9. ALL OTHER THERAPEUTIC PRODUCTS [Concomitant]

REACTIONS (6)
  - FEELING ABNORMAL [None]
  - INFLUENZA LIKE ILLNESS [None]
  - NEUROPATHY PERIPHERAL [None]
  - OEDEMA PERIPHERAL [None]
  - PANCYTOPENIA [None]
  - THERAPEUTIC RESPONSE DECREASED [None]
